FAERS Safety Report 6965639-8 (Version None)
Quarter: 2010Q3

REPORT INFORMATION
  Report Type: 
  Country: None (occurrence: None)
  Receive Date: 20100903
  Receipt Date: 20100804
  Transmission Date: 20110219
  Serious: Yes (Death, Hospitalization, Other)
  Sender: FDA-Public Use
  Company Number: PHEH2004US02049

PATIENT
  Sex: Male
  Weight: 68.027 kg

DRUGS (33)
  1. AREDIA [Suspect]
     Indication: MULTIPLE MYELOMA
     Dosage: 90 MG, QMO
     Dates: start: 19990112, end: 20030110
  2. ZOMETA [Suspect]
     Indication: MULTIPLE MYELOMA
     Dosage: 4 MG, QMO
     Dates: start: 20030204, end: 20040108
  3. VINCRISTINE [Concomitant]
     Dosage: 1MG X 10 CYCLES
     Dates: start: 19990108, end: 19990831
  4. CYTOXAN [Concomitant]
     Dosage: 50 MG, UNK
     Dates: start: 19990129, end: 19990928
  5. MELPHALAN [Concomitant]
     Dosage: 2 MG, UNK
     Route: 048
     Dates: start: 19990129, end: 19990928
  6. MELPHALAN [Concomitant]
     Dosage: 12 MG /DAY X 4
     Dates: start: 20010607
  7. MELPHALAN [Concomitant]
     Dosage: 300 MG, UNK
     Route: 042
     Dates: start: 20031213
  8. PREDNISONE [Concomitant]
     Dosage: 50 MG, UNK
     Dates: start: 19990129, end: 19990928
  9. PREDNISONE [Concomitant]
     Dosage: 100 MG/DAY X 4
     Dates: start: 20010607
  10. DEXAMETHASONE [Concomitant]
     Dosage: UNK, UNK
     Dates: start: 19990101
  11. DEXAMETHASONE [Concomitant]
     Dosage: 40 MG, QD
     Dates: start: 20020409
  12. THALIDOMIDE [Concomitant]
     Dates: start: 20020401
  13. THALIDOMIDE [Concomitant]
     Dosage: 400 MG, QD
     Dates: start: 20020801
  14. BACTRIM DS [Concomitant]
     Indication: PROPHYLAXIS
     Dosage: 1 TABLET/MON-WED-FRI
     Dates: start: 20040101
  15. OXYCONTIN [Concomitant]
     Dosage: 20 MG, BID
  16. CYCLOPHOSPHAMIDE [Concomitant]
     Dosage: 3700 MG, UNK
     Route: 042
     Dates: start: 20031017
  17. AMBIEN [Concomitant]
  18. LORTAB [Concomitant]
  19. RADIATION THERAPY [Concomitant]
  20. VALTREX [Concomitant]
  21. DIFLUCAN [Concomitant]
  22. ATIVAN [Concomitant]
  23. VELCADE [Concomitant]
     Indication: MULTIPLE MYELOMA
     Dosage: UNK
     Dates: start: 20040701
  24. METFORMIN [Concomitant]
  25. HYDROCODONE BITARTRATE AND ACETAMINOPHEN [Concomitant]
  26. FLAGYL [Concomitant]
  27. DECADRON [Concomitant]
  28. MEGACE [Concomitant]
  29. AMOXICILLIN [Concomitant]
  30. GLUCOPHAGE [Concomitant]
  31. CLINDAMYCIN [Concomitant]
  32. AUGMENTIN '125' [Concomitant]
  33. CHLORHEXIDINE GLUCONATE [Concomitant]

REACTIONS (62)
  - ACTIVITIES OF DAILY LIVING IMPAIRED [None]
  - ASCITES [None]
  - BIOPSY [None]
  - BIOPSY LIVER ABNORMAL [None]
  - BONE DISORDER [None]
  - BONE EROSION [None]
  - BONE LESION [None]
  - CHEST PAIN [None]
  - CHILLS [None]
  - CLOSTRIDIAL INFECTION [None]
  - CONFUSIONAL STATE [None]
  - DEATH [None]
  - DECREASED APPETITE [None]
  - DEFORMITY [None]
  - DENTAL PROSTHESIS USER [None]
  - DIARRHOEA [None]
  - DYSPNOEA [None]
  - ERYTHEMA [None]
  - FATIGUE [None]
  - GINGIVAL ERYTHEMA [None]
  - HEPATIC LESION [None]
  - HEPATITIS [None]
  - HYPERBARIC OXYGEN THERAPY [None]
  - HYPOAESTHESIA [None]
  - HYPOAESTHESIA ORAL [None]
  - IMPAIRED HEALING [None]
  - INFECTION [None]
  - INJURY [None]
  - INTERVERTEBRAL DISC DEGENERATION [None]
  - JAW OPERATION [None]
  - LUNG INFILTRATION [None]
  - LUNG NEOPLASM [None]
  - MALIGNANT NEOPLASM PROGRESSION [None]
  - MALNUTRITION [None]
  - MOUTH ULCERATION [None]
  - MUSCULOSKELETAL DISCOMFORT [None]
  - NAUSEA [None]
  - NERVE INJURY [None]
  - OEDEMA [None]
  - OEDEMA MOUTH [None]
  - ORAL MUCOSAL DISCOLOURATION [None]
  - ORAL PAIN [None]
  - OSTEOMYELITIS [None]
  - OSTEONECROSIS OF JAW [None]
  - PAIN [None]
  - PAIN IN JAW [None]
  - PANCYTOPENIA [None]
  - PARAESTHESIA [None]
  - PATHOLOGICAL FRACTURE [None]
  - PLEURAL EFFUSION [None]
  - RADIATION INJURY [None]
  - SINUSITIS [None]
  - SPINAL OSTEOARTHRITIS [None]
  - SPLENOMEGALY [None]
  - STEM CELL TRANSPLANT [None]
  - SWELLING [None]
  - TENDERNESS [None]
  - TOOTH ABSCESS [None]
  - TOOTH EXTRACTION [None]
  - TOOTH LOSS [None]
  - WEIGHT DECREASED [None]
  - WOUND DRAINAGE [None]
